FAERS Safety Report 25607737 (Version 1)
Quarter: 2025Q3

REPORT INFORMATION
  Report Type: Spontaneous
  Country: BR (occurrence: BR)
  Receive Date: 20250725
  Receipt Date: 20250725
  Transmission Date: 20251021
  Serious: Yes (Other)
  Sender: DAIICHI
  Company Number: BR-DSJP-DSE-2023-136922

PATIENT
  Sex: Female

DRUGS (1)
  1. EDOXABAN TOSYLATE [Suspect]
     Active Substance: EDOXABAN TOSYLATE
     Indication: Arrhythmia
     Dosage: 60 MG, QD (EVERY DAY)
     Route: 065

REACTIONS (1)
  - Breast cancer [Unknown]
